FAERS Safety Report 7135380-X (Version None)
Quarter: 2010Q4

REPORT INFORMATION
  Report Type: 
  Country: None (occurrence: None)
  Receive Date: 20101203
  Receipt Date: 20101123
  Transmission Date: 20110411
  Serious: Yes (Hospitalization)
  Sender: FDA-Public Use
  Company Number: CA-JNJFOC-20101108936

PATIENT
  Sex: Male
  Weight: 85 kg

DRUGS (2)
  1. REMICADE [Suspect]
     Indication: CROHN'S DISEASE
     Route: 042
  2. METHOTREXATE [Concomitant]
     Indication: CROHN'S DISEASE

REACTIONS (3)
  - CHOLECYSTITIS [None]
  - CHOLELITHIASIS [None]
  - PANCREATITIS [None]
